FAERS Safety Report 21265890 (Version 1)
Quarter: 2022Q3

REPORT INFORMATION
  Report Type: Report from Study
  Country: MX (occurrence: MX)
  Receive Date: 20220829
  Receipt Date: 20220829
  Transmission Date: 20221027
  Serious: Yes (Hospitalization)
  Sender: FDA-Public Use
  Company Number: MX-NOVARTISPH-NVSC2022MX025463

PATIENT
  Age: 42 Year
  Sex: Female
  Weight: 85 kg

DRUGS (2)
  1. TASIGNA [Suspect]
     Active Substance: NILOTINIB
     Indication: Chronic myeloid leukaemia
     Dosage: 800 MG
     Route: 048
     Dates: start: 202108
  2. TASIGNA [Suspect]
     Active Substance: NILOTINIB
     Dosage: UNK
     Route: 048

REACTIONS (8)
  - Multi-organ disorder [Unknown]
  - COVID-19 [Unknown]
  - Productive cough [Unknown]
  - Rhinorrhoea [Unknown]
  - Intraocular pressure increased [Unknown]
  - Oropharyngeal pain [Unknown]
  - Throat irritation [Unknown]
  - Dizziness [Unknown]

NARRATIVE: CASE EVENT DATE: 20220111
